FAERS Safety Report 6294741-1 (Version None)
Quarter: 2009Q3

REPORT INFORMATION
  Report Type: 
  Country: None (occurrence: None)
  Receive Date: 20090803
  Receipt Date: 20090727
  Transmission Date: 20100115
  Serious: No
  Sender: FDA-Public Use
  Company Number: US-JNJFOC-20090709000

PATIENT
  Sex: Female

DRUGS (8)
  1. FENTANYL TRANSDERMAL SYSTEM [Suspect]
     Route: 062
  2. FENTANYL TRANSDERMAL SYSTEM [Suspect]
     Route: 062
  3. FENTANYL TRANSDERMAL SYSTEM [Suspect]
     Indication: BACK PAIN
     Route: 062
  4. FENTANYL TRANSDERMAL SYSTEM [Suspect]
     Indication: BACK PAIN
     Route: 062
  5. PHENOBARBITAL [Concomitant]
     Indication: EPILEPSY
     Route: 065
  6. DILANTIN [Concomitant]
     Indication: EPILEPSY
     Route: 065
  7. INDERAL [Concomitant]
     Indication: CARDIAC DISORDER
     Route: 065
  8. COZAAR [Concomitant]
     Indication: CARDIAC DISORDER
     Route: 065

REACTIONS (5)
  - CONSTIPATION [None]
  - DRUG ADMINISTRATION ERROR [None]
  - HYPERHIDROSIS [None]
  - INAPPROPRIATE SCHEDULE OF DRUG ADMINISTRATION [None]
  - TREMOR [None]
